FAERS Safety Report 16019182 (Version 1)
Quarter: 2019Q1

REPORT INFORMATION
  Report Type: Spontaneous
  Country: US (occurrence: US)
  Receive Date: 20190228
  Receipt Date: 20190228
  Transmission Date: 20190418
  Serious: Yes (Other)
  Sender: FDA-Public Use
  Company Number: US-ASTRAZENECA-2019SE31564

PATIENT
  Age: 29978 Day
  Sex: Female
  Weight: 112.4 kg

DRUGS (29)
  1. LIPITOR [Concomitant]
     Active Substance: ATORVASTATIN CALCIUM
  2. RANITIDINE. [Concomitant]
     Active Substance: RANITIDINE
  3. ROPINIROLE. [Concomitant]
     Active Substance: ROPINIROLE
  4. FUROSEMIDE. [Concomitant]
     Active Substance: FUROSEMIDE
  5. NYSTATIN. [Concomitant]
     Active Substance: NYSTATIN
  6. GABAPENTIN. [Concomitant]
     Active Substance: GABAPENTIN
  7. PRILOSEC [Suspect]
     Active Substance: OMEPRAZOLE MAGNESIUM
     Route: 048
  8. CELEBREX [Concomitant]
     Active Substance: CELECOXIB
  9. TRIBENZOR [Concomitant]
     Active Substance: AMLODIPINE BESYLATE\HYDROCHLOROTHIAZIDE\OLMESARTAN MEDOXOMIL
  10. GLIPIZIDE. [Concomitant]
     Active Substance: GLIPIZIDE
  11. OXYCODONE [Concomitant]
     Active Substance: OXYCODONE
  12. ZOSTAVAX [Concomitant]
     Active Substance: VARICELLA-ZOSTER VIRUS STRAIN OKA/MERCK LIVE ANTIGEN
  13. DULOXETINE. [Concomitant]
     Active Substance: DULOXETINE
  14. NEXIUM [Suspect]
     Active Substance: ESOMEPRAZOLE MAGNESIUM
     Route: 048
     Dates: start: 20100206
  15. CIPRODEX [Concomitant]
     Active Substance: CIPROFLOXACIN HYDROCHLORIDE\DEXAMETHASONE
  16. CLOTRIMAZOLE. [Concomitant]
     Active Substance: CLOTRIMAZOLE
  17. METFORMIN [Concomitant]
     Active Substance: METFORMIN HYDROCHLORIDE
  18. PREDNISONE. [Concomitant]
     Active Substance: PREDNISONE
  19. HYDRALAZINE [Concomitant]
     Active Substance: HYDRALAZINE HYDROCHLORIDE
  20. DIAZEPAM. [Concomitant]
     Active Substance: DIAZEPAM
  21. ZETIA [Concomitant]
     Active Substance: EZETIMIBE
  22. OXYCODONE-ACETAMINOPHEN [Concomitant]
     Active Substance: ACETAMINOPHEN\OXYCODONE HYDROCHLORIDE
  23. ALLOPURINOL. [Concomitant]
     Active Substance: ALLOPURINOL
  24. CLINDAMYCIN. [Concomitant]
     Active Substance: CLINDAMYCIN
  25. SPIRIVA [Concomitant]
     Active Substance: TIOTROPIUM BROMIDE MONOHYDRATE
  26. NEXIUM [Suspect]
     Active Substance: ESOMEPRAZOLE MAGNESIUM
     Route: 048
     Dates: start: 20120821
  27. PROMETHAZINE [Concomitant]
     Active Substance: PROMETHAZINE\PROMETHAZINE HYDROCHLORIDE
  28. COLCHICINE. [Concomitant]
     Active Substance: COLCHICINE
  29. MACROBID [Concomitant]
     Active Substance: NITROFURANTOIN\NITROFURANTOIN MONOHYDRATE

REACTIONS (2)
  - Renal failure [Unknown]
  - Chronic kidney disease [Unknown]

NARRATIVE: CASE EVENT DATE: 20171002
